FAERS Safety Report 4972172-1 (Version None)
Quarter: 2006Q1

REPORT INFORMATION
  Report Type: 
  Country: None (occurrence: None)
  Receive Date: 20060214
  Receipt Date: 20051128
  Transmission Date: 20060701
  Serious: No
  Sender: FDA-Public Use
  Company Number: 200610140US

PATIENT
  Sex: Female

DRUGS (2)
  1. INSULIN GLULISINE (APIDRA) [Suspect]
  2. UNSPECIFIED MEDICATION [Concomitant]

REACTIONS (1)
  - RASH PRURITIC [None]
